FAERS Safety Report 4503787-2 (Version None)
Quarter: 2004Q4

REPORT INFORMATION
  Report Type: 
  Country: None (occurrence: None)
  Receive Date: 20041117
  Receipt Date: 20041001
  Transmission Date: 20050328
  Serious: Yes (Life-Threatening, Hospitalization)
  Sender: FDA-Public Use
  Company Number: DE-MERCK-0410DEU00012

PATIENT
  Age: 83 Year
  Sex: Male
  Weight: 78 kg

DRUGS (1)
  1. VIOXX [Suspect]
     Indication: LOCALISED OSTEOARTHRITIS
     Route: 048
     Dates: start: 20020101

REACTIONS (1)
  - GLOMERULONEPHRITIS MEMBRANOUS [None]
